FAERS Safety Report 14111798 (Version 1)
Quarter: 2017Q4

REPORT INFORMATION
  Report Type: Spontaneous
  Country: US (occurrence: US)
  Receive Date: 20171020
  Receipt Date: 20171020
  Transmission Date: 20180321
  Serious: No
  Sender: FDA-Public Use
  Company Number: None

PATIENT
  Age: 64 Year
  Sex: Female

DRUGS (1)
  1. PRALUENT [Suspect]
     Active Substance: ALIROCUMAB
     Indication: TYPE IIA HYPERLIPIDAEMIA
     Dosage: ?          OTHER FREQUENCY:QOW;?
     Route: 058
     Dates: start: 20170616

REACTIONS (3)
  - Dysphagia [None]
  - Eye pain [None]
  - Middle ear effusion [None]

NARRATIVE: CASE EVENT DATE: 20170630
